FAERS Safety Report 7448431 (Version 20)
Quarter: 2015Q2

REPORT INFORMATION
  Report Type: Report from Study
  Country: CA (occurrence: CA)
  Receive Date: 20100630
  Receipt Date: 20150518
  Transmission Date: 20150821
  Serious: Yes (Other)
  Sender: FDA-Public Use
  Company Number: PHHY2009CA54607

PATIENT
  Age: 69 Year
  Sex: Male

DRUGS (13)
  1. EXJADE [Suspect]
     Active Substance: DEFERASIROX
     Dosage: 1500 MG, QD
     Route: 048
  2. EXJADE [Suspect]
     Active Substance: DEFERASIROX
     Dosage: 1750 MG, QD
     Route: 048
  3. EXJADE [Suspect]
     Active Substance: DEFERASIROX
     Route: 048
  4. EXJADE [Suspect]
     Active Substance: DEFERASIROX
     Dosage: 2000 MG, QD
     Route: 048
  5. EXJADE [Suspect]
     Active Substance: DEFERASIROX
     Dosage: 1000 MG, QD
     Route: 048
  6. EXJADE [Suspect]
     Active Substance: DEFERASIROX
     Dosage: 500 MG, QD
     Route: 048
  7. EXJADE [Suspect]
     Active Substance: DEFERASIROX
     Dosage: 2000 MG, QD
     Route: 048
  8. EXJADE [Suspect]
     Active Substance: DEFERASIROX
     Dosage: 1500 MG, QD
     Route: 048
     Dates: start: 20140303
  9. REVLIMID [Suspect]
     Active Substance: LENALIDOMIDE
     Indication: MYELODYSPLASTIC SYNDROME
     Route: 065
     Dates: start: 20100824
  10. EXJADE [Suspect]
     Active Substance: DEFERASIROX
     Indication: MYELODYSPLASTIC SYNDROME
     Dosage: 1750 MG, QD
     Route: 048
     Dates: start: 20090701
  11. EXJADE [Suspect]
     Active Substance: DEFERASIROX
     Dosage: 1750 MG, QD
     Route: 048
  12. EXJADE [Suspect]
     Active Substance: DEFERASIROX
     Dosage: 2000 MG, QD
     Route: 048
     Dates: start: 20091111, end: 20110325
  13. TESTOSTERONE. [Concomitant]
     Active Substance: TESTOSTERONE
     Indication: PRODUCT USED FOR UNKNOWN INDICATION
     Route: 062

REACTIONS (22)
  - Arrhythmia [Unknown]
  - Macular degeneration [Unknown]
  - Diarrhoea [Not Recovered/Not Resolved]
  - Abdominal discomfort [Unknown]
  - Red blood cell count decreased [Unknown]
  - Blood creatinine increased [Recovering/Resolving]
  - Heart rate increased [Unknown]
  - Serum ferritin increased [Not Recovered/Not Resolved]
  - Constipation [Unknown]
  - Renal impairment [Unknown]
  - Extrasystoles [Unknown]
  - Atrial fibrillation [Unknown]
  - Gastrointestinal motility disorder [Unknown]
  - Infection [Unknown]
  - Atrial flutter [Recovered/Resolved]
  - Flatulence [Unknown]
  - Tooth infection [Unknown]
  - Abdominal pain [Unknown]
  - Pneumonia bacterial [Recovered/Resolved]
  - Neutrophil count decreased [Unknown]
  - Heart rate irregular [Unknown]
  - Abdominal distension [Unknown]

NARRATIVE: CASE EVENT DATE: 20110322
